FAERS Safety Report 7719357-9 (Version None)
Quarter: 2011Q3

REPORT INFORMATION
  Report Type: 
  Country: None (occurrence: None)
  Receive Date: 20110830
  Receipt Date: 20110824
  Transmission Date: 20111222
  Serious: Yes (Death)
  Sender: FDA-Public Use
  Company Number: US-CELGENEUS-163-21880-11082941

PATIENT
  Sex: Male
  Weight: 93.07 kg

DRUGS (7)
  1. REVLIMID [Suspect]
     Indication: MULTIPLE MYELOMA
     Dosage: 25 MILLIGRAM
     Route: 048
     Dates: start: 20110707
  2. DIGOXIN [Concomitant]
     Indication: HYPERTENSION
     Route: 065
  3. MINOCYCLINE HCL [Concomitant]
     Indication: WOUND TREATMENT
     Route: 065
  4. NEPHRO-VITE [Concomitant]
     Route: 065
  5. NIFEDIPINE [Concomitant]
     Indication: HYPERTENSION
     Route: 065
  6. CIPROFLOXACIN [Concomitant]
     Indication: WOUND TREATMENT
     Route: 065
  7. NEURONTIN [Concomitant]
     Route: 065

REACTIONS (1)
  - DEATH [None]
